FAERS Safety Report 5007227-9 (Version None)
Quarter: 2006Q1

REPORT INFORMATION
  Report Type: 
  Country: None (occurrence: None)
  Receive Date: 20060320
  Receipt Date: 20050322
  Transmission Date: 20060701
  Serious: Yes (Hospitalization)
  Sender: FDA-Public Use
  Company Number: 2005-03-1503

PATIENT
  Age: 55 Year
  Sex: Female
  Weight: 77.5651 kg

DRUGS (5)
  1. PEG-INTRON [Suspect]
     Indication: HEPATITIS C
     Dosage: 150 MCG QW SUBCUTANEOUS
     Route: 058
     Dates: start: 20041112
  2. RIBAVIRIN [Suspect]
     Indication: HEPATITIS C
     Dosage: 600 MG BID
     Dates: start: 20041112
  3. AMITRIPTYLINE HCL [Concomitant]
  4. GLUCOPHAGE [Concomitant]
  5. LORTAB [Concomitant]

REACTIONS (1)
  - POSTOPERATIVE WOUND INFECTION [None]
